FAERS Safety Report 4356003-9 (Version None)
Quarter: 2004Q2

REPORT INFORMATION
  Report Type: 
  Country: None (occurrence: None)
  Receive Date: 20040507
  Receipt Date: 20040507
  Transmission Date: 20050107
  Serious: Yes (Hospitalization)
  Sender: FDA-Public Use
  Company Number: None

PATIENT
  Age: 57 Year
  Sex: Male
  Weight: 106.6 kg

DRUGS (2)
  1. METFORMIN HYDROCHLORIDE [Suspect]
  2. GLYBURIDE [Suspect]

REACTIONS (1)
  - HYPOGLYCAEMIA [None]
